FAERS Safety Report 11910937 (Version 1)
Quarter: 2016Q1

REPORT INFORMATION
  Report Type: Spontaneous
  Country: US (occurrence: None)
  Receive Date: 20160111
  Receipt Date: 20160111
  Transmission Date: 20160526
  Serious: No
  Sender: FDA-Public Use
  Company Number: None

PATIENT
  Age: 52 Year
  Sex: Female
  Weight: 108.86 kg

DRUGS (13)
  1. DIOVAN [Concomitant]
     Active Substance: VALSARTAN
  2. ARMOUR THYROID REPLACEMENT [Concomitant]
  3. BIO IDENTICAL HORMONES [Concomitant]
  4. PROBIOTICS [Concomitant]
     Active Substance: PROBIOTICS NOS
  5. VITAMIN B12 [Concomitant]
     Active Substance: CYANOCOBALAMIN
  6. METFORMIN [Concomitant]
     Active Substance: METFORMIN HYDROCHLORIDE
  7. VIT  B COMPLEX [Concomitant]
  8. LEVEMIR [Suspect]
     Active Substance: INSULIN DETEMIR
     Indication: DIABETES MELLITUS
     Dosage: 50 UNITS DAILY IN AM, GIVEN INTO/UNDER THE SKIN??OVER A YEAR
  9. FOLIC ACID. [Concomitant]
     Active Substance: FOLIC ACID
  10. PROTONIX [Concomitant]
     Active Substance: PANTOPRAZOLE SODIUM
  11. VITAMIN D [Concomitant]
     Active Substance: CHOLECALCIFEROL
  12. VITAMIN C [Concomitant]
     Active Substance: ASCORBIC ACID
  13. KRILL OIL [Concomitant]
     Active Substance: DIETARY SUPPLEMENT

REACTIONS (8)
  - Muscular weakness [None]
  - Gait disturbance [None]
  - Sinus congestion [None]
  - Arthralgia [None]
  - Arthropathy [None]
  - Pain [None]
  - Cough [None]
  - Dyspnoea [None]
